FAERS Safety Report 24664776 (Version 1)
Quarter: 2024Q4

REPORT INFORMATION
  Report Type: Report from Study
  Country: IN (occurrence: IN)
  Receive Date: 20241126
  Receipt Date: 20241126
  Transmission Date: 20250114
  Serious: Yes (Other)
  Sender: ROCHE
  Company Number: IN-002147023-NVSC2024IN223339

PATIENT
  Age: 72 Year
  Sex: Male
  Weight: 70 kg

DRUGS (1)
  1. RANIBIZUMAB [Suspect]
     Active Substance: RANIBIZUMAB
     Indication: Age-related macular degeneration
     Dosage: 0.05 MG, QMO
     Route: 050
     Dates: start: 20240717, end: 20240824

REACTIONS (3)
  - Cataract [Unknown]
  - Dry age-related macular degeneration [Unknown]
  - Eyelid ptosis [Unknown]
